FAERS Safety Report 8960606 (Version 1)
Quarter: 2012Q4

REPORT INFORMATION
  Report Type: 
  Country: US (occurrence: US)
  Receive Date: 20121212
  Receipt Date: 20121212
  Transmission Date: 20130627
  Serious: No
  Sender: FDA-Public Use
  Company Number: US-BAYER-2012-130623

PATIENT
  Age: 84 Year
  Sex: Female
  Weight: 66 kg

DRUGS (3)
  1. ALEVE CAPLET/TABLET,MIDOL EXTENDED RELIEF CAPLET [Suspect]
     Indication: PAIN RELIEF
     Dosage: 1 DF, BID
     Route: 048
     Dates: start: 20121130
  2. SHOT IN EYE EVERY 6 WEEKS FOR GLAUCOMA [Concomitant]
     Dosage: UNK
  3. LUMIGAN [Concomitant]
     Dosage: UNK

REACTIONS (1)
  - Constipation [None]
